FAERS Safety Report 5517392-2 (Version None)
Quarter: 2007Q4

REPORT INFORMATION
  Report Type: 
  Country: None (occurrence: None)
  Receive Date: 20071109
  Receipt Date: 20071030
  Transmission Date: 20080405
  Serious: Yes (Life-Threatening, Hospitalization, Disabling)
  Sender: FDA-Public Use
  Company Number: B0348809A

PATIENT
  Age: 33 Year
  Sex: Female

DRUGS (3)
  1. PARACETAMOL (FORMULATION UNKNOWN) (ACETAMINOPHEN) [Suspect]
  2. IBUPROFEN [Suspect]
  3. AMITRIPTLINE HCL [Suspect]
     Indication: DEPRESSION
     Dosage: ORAL
     Route: 048
     Dates: end: 20020917

REACTIONS (17)
  - BACTERIA SPUTUM IDENTIFIED [None]
  - CARDIAC ARREST [None]
  - COMA [None]
  - CONVULSION [None]
  - ELECTROMECHANICAL DISSOCIATION [None]
  - GENERAL PHYSICAL HEALTH DETERIORATION [None]
  - GRAND MAL CONVULSION [None]
  - HAEMOPHILUS INFECTION [None]
  - LUNG CONSOLIDATION [None]
  - LUNG INFILTRATION [None]
  - MULTIPLE DRUG OVERDOSE [None]
  - PARALYSIS [None]
  - PNEUMOTHORAX [None]
  - PYREXIA [None]
  - STREPTOCOCCAL INFECTION [None]
  - TACHYCARDIA [None]
  - TACHYPNOEA [None]
